FAERS Safety Report 8490896-9 (Version None)
Quarter: 2012Q2

REPORT INFORMATION
  Report Type: 
  Country: None (occurrence: None)
  Receive Date: 20120628
  Receipt Date: 20120628
  Transmission Date: 20120825
  Serious: Yes (Hospitalization)
  Sender: FDA-Public Use
  Company Number: None

PATIENT
  Sex: Female
  Weight: 13.2 kg

DRUGS (2)
  1. CARBOPLATIN [Suspect]
     Dosage: 476 MG
     Dates: end: 20120612
  2. THIOTEPA [Suspect]
     Dosage: 280 MG
     Dates: end: 20120612

REACTIONS (7)
  - SOMNOLENCE [None]
  - VOMITING [None]
  - FEBRILE NEUTROPENIA [None]
  - MALAISE [None]
  - EATING DISORDER [None]
  - DIARRHOEA [None]
  - COUGH [None]
